FAERS Safety Report 25893223 (Version 1)
Quarter: 2025Q4

REPORT INFORMATION
  Report Type: Report from Study
  Country: GB (occurrence: GB)
  Receive Date: 20251008
  Receipt Date: 20251008
  Transmission Date: 20260118
  Serious: Yes (Disabling)
  Sender: ABBVIE
  Company Number: GB-ABBVIE-6491395

PATIENT
  Age: 5 Decade
  Sex: Female

DRUGS (1)
  1. MIRVETUXIMAB SORAVTANSINE [Suspect]
     Active Substance: MIRVETUXIMAB SORAVTANSINE
     Indication: Product used for unknown indication
     Route: 042

REACTIONS (1)
  - Blindness [Recovering/Resolving]
